FAERS Safety Report 5136548-4 (Version None)
Quarter: 2006Q4

REPORT INFORMATION
  Report Type: 
  Country: None (occurrence: None)
  Receive Date: 20061027
  Receipt Date: 20061020
  Transmission Date: 20070319
  Serious: Yes (Hospitalization)
  Sender: FDA-Public Use
  Company Number: NO-NOVOPROD-257890

PATIENT
  Age: 57 Year
  Sex: Female

DRUGS (1)
  1. VAGIFEM [Suspect]
     Indication: DRUG USE FOR UNKNOWN INDICATION
     Dosage: 1 TAB. TWICE WEEKLY
     Route: 067
     Dates: start: 20060101, end: 20060201

REACTIONS (1)
  - THROMBOSIS [None]
